FAERS Safety Report 17917706 (Version 1)
Quarter: 2020Q2

REPORT INFORMATION
  Report Type: Report from Study
  Country: AU (occurrence: AU)
  Receive Date: 20200619
  Receipt Date: 20200619
  Transmission Date: 20200714
  Serious: Yes (Hospitalization)
  Sender: FDA-Public Use
  Company Number: AU-BIOGEN-2019BI00697348

PATIENT
  Age: 28 Year
  Sex: Female

DRUGS (5)
  1. TECFIDERA [Suspect]
     Active Substance: DIMETHYL FUMARATE
     Dosage: EVENING
     Route: 048
     Dates: start: 20190221, end: 20190227
  2. TECFIDERA [Suspect]
     Active Substance: DIMETHYL FUMARATE
     Dosage: MORNING
     Route: 048
     Dates: start: 20190221, end: 20190227
  3. TECFIDERA [Suspect]
     Active Substance: DIMETHYL FUMARATE
     Indication: MULTIPLE SCLEROSIS
     Dosage: STARTING DOSE
     Route: 050
     Dates: start: 20190207
  4. TECFIDERA [Suspect]
     Active Substance: DIMETHYL FUMARATE
     Dosage: MAINTENANCE DOSE
     Route: 048
  5. TECFIDERA [Suspect]
     Active Substance: DIMETHYL FUMARATE
     Dosage: MAINTENANCE DOSE
     Route: 048
     Dates: start: 20190207, end: 202005

REACTIONS (16)
  - Gastrointestinal procedural complication [Recovered/Resolved]
  - Fatigue [Not Recovered/Not Resolved]
  - Blood iron decreased [Not Recovered/Not Resolved]
  - Flushing [Unknown]
  - Skin procedural complication [Unknown]
  - Nasal congestion [Unknown]
  - Abdominal discomfort [Not Recovered/Not Resolved]
  - Pallor [Not Recovered/Not Resolved]
  - Viral infection [Recovered/Resolved]
  - Hot flush [Recovered/Resolved]
  - Blood viscosity decreased [Unknown]
  - Vertigo [Unknown]
  - Nausea [Unknown]
  - Yellow skin [Recovered/Resolved]
  - Procedural pain [Unknown]
  - Pruritus [Not Recovered/Not Resolved]

NARRATIVE: CASE EVENT DATE: 20190207
